FAERS Safety Report 19158754 (Version 2)
Quarter: 2021Q2

REPORT INFORMATION
  Report Type: Spontaneous
  Country: MY (occurrence: MY)
  Receive Date: 20210420
  Receipt Date: 20210506
  Transmission Date: 20210717
  Serious: Yes (Other)
  Sender: FDA-Public Use
  Company Number: MY-PFIZER INC-2021421398

PATIENT
  Age: 51 Year
  Sex: Female

DRUGS (9)
  1. ENOXAPARIN [Concomitant]
     Active Substance: ENOXAPARIN
     Indication: COVID-19 PNEUMONIA
  2. CLARITHROMYCIN. [Concomitant]
     Active Substance: CLARITHROMYCIN
     Indication: COVID-19 PNEUMONIA
  3. CLARITHROMYCIN. [Concomitant]
     Active Substance: CLARITHROMYCIN
     Indication: ACUTE RESPIRATORY DISTRESS SYNDROME
     Dosage: 500 MG, 2X/DAY
     Route: 042
  4. METHYLPREDNISOLONE SODIUM SUCCINATE. [Suspect]
     Active Substance: METHYLPREDNISOLONE SODIUM SUCCINATE
     Indication: COVID-19 PNEUMONIA
  5. CO?AMOXICLAV [AMOXICILLIN;CLAVULANATE POTASSIUM] [Concomitant]
     Active Substance: AMOXICILLIN\CLAVULANATE POTASSIUM
     Indication: ACUTE RESPIRATORY DISTRESS SYNDROME
     Dosage: 1.2 G, 3X/DAY
     Route: 042
  6. METHYLPREDNISOLONE SODIUM SUCCINATE. [Suspect]
     Active Substance: METHYLPREDNISOLONE SODIUM SUCCINATE
     Indication: ACUTE RESPIRATORY DISTRESS SYNDROME
     Dosage: 1 MG/KG, 1X/DAY
     Route: 042
  7. OXYGEN. [Concomitant]
     Active Substance: OXYGEN
     Indication: COVID-19 PNEUMONIA
     Dosage: 15 L (HIGH FLOW OXYGEN MASK)
  8. ENOXAPARIN [Concomitant]
     Active Substance: ENOXAPARIN
     Indication: ACUTE RESPIRATORY DISTRESS SYNDROME
     Dosage: 60 MG, 2X/DAY
     Route: 058
  9. CO?AMOXICLAV [AMOXICILLIN;CLAVULANATE POTASSIUM] [Concomitant]
     Active Substance: AMOXICILLIN\CLAVULANATE POTASSIUM
     Indication: COVID-19 PNEUMONIA

REACTIONS (1)
  - Hyperglycaemia [Unknown]
